FAERS Safety Report 4429229-3 (Version None)
Quarter: 2004Q3

REPORT INFORMATION
  Report Type: 
  Country: None (occurrence: None)
  Receive Date: 20040817
  Receipt Date: 20040817
  Transmission Date: 20050211
  Serious: No
  Sender: FDA-Public Use
  Company Number: None

PATIENT
  Sex: Male
  Weight: 121 kg

DRUGS (13)
  1. ZOCOR [Suspect]
     Indication: HYPERLIPIDAEMIA
     Dosage: 80 MG QHS ORAL
     Route: 048
     Dates: start: 20040311, end: 20040816
  2. NTG SL [Concomitant]
  3. LISINOPRIL [Concomitant]
  4. ATIVAN [Concomitant]
  5. PRAZOSIN HCL [Concomitant]
  6. TRAZODONE [Concomitant]
  7. EFFEXOR XR [Concomitant]
  8. OMEGA-3 [Concomitant]
  9. M.V.I. [Concomitant]
  10. ALPHAGAN P [Concomitant]
  11. LUMIGAN DROPS [Concomitant]
  12. IBUPROFEN [Concomitant]
  13. METOPROLOL [Concomitant]

REACTIONS (3)
  - ASTHENIA [None]
  - BLOOD CREATINE PHOSPHOKINASE INCREASED [None]
  - MYALGIA [None]
